FAERS Safety Report 7740218-3 (Version None)
Quarter: 2011Q3

REPORT INFORMATION
  Report Type: 
  Country: None (occurrence: None)
  Receive Date: 20110909
  Receipt Date: 20110909
  Transmission Date: 20111222
  Serious: No
  Sender: FDA-Public Use
  Company Number: None

PATIENT

DRUGS (1)
  1. AZITHROMYCIN [Suspect]
     Dosage: 500MG
     Route: 042

REACTIONS (2)
  - PRODUCT CONTAMINATION PHYSICAL [None]
  - PRODUCT COMPOUNDING QUALITY ISSUE [None]
